FAERS Safety Report 9491701 (Version 1)
Quarter: 2013Q3

REPORT INFORMATION
  Report Type: Spontaneous
  Country: CG (occurrence: CG)
  Receive Date: 20130830
  Receipt Date: 20130830
  Transmission Date: 20140515
  Serious: Yes (Hospitalization, Other)
  Sender: FDA-Public Use
  Company Number: CG-009507513-1308COG013674

PATIENT
  Age: 55 Year
  Sex: Male
  Weight: 62 kg

DRUGS (1)
  1. IVERMECTIN [Suspect]
     Dosage: 4 DF, ONCE
     Dates: start: 20120907

REACTIONS (4)
  - Toxic encephalopathy [Recovered/Resolved]
  - Pyrexia [Recovered/Resolved]
  - Abnormal behaviour [Recovered/Resolved]
  - Diarrhoea [Recovered/Resolved]
